FAERS Safety Report 10653020 (Version 1)
Quarter: 2014Q4

REPORT INFORMATION
  Report Type: Spontaneous
  Country: US (occurrence: US)
  Receive Date: 20141215
  Receipt Date: 20141215
  Transmission Date: 20150529
  Serious: No
  Sender: FDA-Public Use
  Company Number: US-PFIZER INC-2014334078

PATIENT
  Age: 81 Year
  Sex: Male
  Weight: 108.84 kg

DRUGS (4)
  1. LISINOPRIL. [Concomitant]
     Active Substance: LISINOPRIL
     Indication: HYPERTENSION
     Dosage: 5 MG, DAILY
  2. WARFARIN [Concomitant]
     Active Substance: WARFARIN
     Indication: CARDIOVASCULAR DISORDER
     Dosage: 5 MG, DAILY
  3. GABAPENTIN. [Suspect]
     Active Substance: GABAPENTIN
     Indication: CARDIOVASCULAR DISORDER
     Dosage: 800 MG (400MG CAPSULE TWO IN THE MORNING)
     Dates: end: 20141201
  4. ASPIRIN. [Concomitant]
     Active Substance: ASPIRIN
     Dosage: 81 MG, DAILY

REACTIONS (14)
  - Alcohol use [Unknown]
  - Malaise [Unknown]
  - Blood cholesterol increased [Unknown]
  - Hyperglycaemia [Unknown]
  - Foot deformity [Unknown]
  - Hallucination [Unknown]
  - Gait disturbance [Unknown]
  - Hypertension [Unknown]
  - Somnolence [Unknown]
  - Memory impairment [Not Recovered/Not Resolved]
  - Back pain [Unknown]
  - Arthralgia [Unknown]
  - Dizziness [Not Recovered/Not Resolved]
  - Arthropathy [Unknown]
